FAERS Safety Report 8415549-4 (Version None)
Quarter: 2012Q2

REPORT INFORMATION
  Report Type: 
  Country: None (occurrence: None)
  Receive Date: 20120606
  Receipt Date: 20120529
  Transmission Date: 20120825
  Serious: Yes (Death)
  Sender: FDA-Public Use
  Company Number: IT-SANOFI-AVENTIS-2012SA032503

PATIENT
  Age: 74 Year
  Sex: Male

DRUGS (1)
  1. JEVTANA KIT [Suspect]
     Route: 042
     Dates: start: 20120329, end: 20120329

REACTIONS (1)
  - DISSEMINATED INTRAVASCULAR COAGULATION [None]
